FAERS Safety Report 8816444 (Version 1)
Quarter: 2012Q4

REPORT INFORMATION
  Report Type: Spontaneous
  Country: DE (occurrence: None)
  Receive Date: 20120927
  Receipt Date: 20120927
  Transmission Date: 20130627
  Serious: Yes (Congenital Anomaly, Other)
  Sender: FDA-Public Use
  Company Number: GER/GER/12/0025928

PATIENT
  Sex: Male
  Weight: 2.89 kg

DRUGS (3)
  1. LEVETIRACETAM [Suspect]
     Indication: DRUG USE FOR UNKNOWN INDICATION
     Route: 064
     Dates: start: 20110518, end: 20120204
  2. FOLIO [Concomitant]
  3. ERYTHROMYCIN (ERYTHROMYCIN) [Concomitant]

REACTIONS (4)
  - Hemivertebra [None]
  - Plagiocephaly [None]
  - Dysmorphism [None]
  - Maternal drugs affecting foetus [None]
